FAERS Safety Report 8979608 (Version 1)
Quarter: 2012Q4

REPORT INFORMATION
  Report Type: 
  Country: US (occurrence: US)
  Receive Date: 20121221
  Receipt Date: 20121221
  Transmission Date: 20130627
  Serious: Yes (Hospitalization)
  Sender: FDA-Public Use
  Company Number: US-TEVA-377045USA

PATIENT
  Age: 13 Year
  Sex: Male

DRUGS (10)
  1. MERCAPTOPURINE [Suspect]
     Route: 048
     Dates: start: 20120917, end: 20121017
  2. DASATINIB [Suspect]
     Indication: ACUTE LYMPHOCYTIC LEUKAEMIA
     Dosage: 1 day
     Route: 048
     Dates: start: 20120822
  3. ARA-C [Suspect]
     Indication: ACUTE LYMPHOCYTIC LEUKAEMIA
     Dosage: 57.1429 Milligram Daily;
     Route: 042
     Dates: start: 20120919
  4. CYCLOPHOSPHAMIDE [Suspect]
     Indication: ACUTE LYMPHOCYTIC LEUKAEMIA
     Route: 042
     Dates: start: 20120917, end: 20121111
  5. METHOTREXATE [Suspect]
     Route: 042
     Dates: start: 20121108, end: 20121109
  6. VINCRISTINE [Suspect]
     Route: 042
     Dates: start: 20121109, end: 20121109
  7. PEGASPARGASE [Suspect]
     Route: 042
     Dates: start: 20121113, end: 20121113
  8. BACTRIM [Concomitant]
     Dates: start: 20120817
  9. NYSTATIN ORAL SUSPENSION [Concomitant]
     Dates: start: 20120814, end: 20120918
  10. LEUCOVORIN [Concomitant]
     Dates: start: 20121110, end: 20121113

REACTIONS (4)
  - Febrile neutropenia [Not Recovered/Not Resolved]
  - Anaemia [Not Recovered/Not Resolved]
  - Thrombocytopenia [Not Recovered/Not Resolved]
  - Neutropenia [Not Recovered/Not Resolved]
